FAERS Safety Report 7888863-9 (Version None)
Quarter: 2011Q4

REPORT INFORMATION
  Report Type: 
  Country: None (occurrence: None)
  Receive Date: 20111103
  Receipt Date: 20111026
  Transmission Date: 20120403
  Serious: Yes (Other)
  Sender: FDA-Public Use
  Company Number: JP-B.I. PHARMACEUTICALS,INC./RIDGEFIELD-2011-DE-06139GD

PATIENT
  Sex: Female

DRUGS (2)
  1. LITHIUM CITRATE [Suspect]
  2. TEMISARTAN [Suspect]

REACTIONS (1)
  - TOXICITY TO VARIOUS AGENTS [None]
